FAERS Safety Report 9438321 (Version 1)
Quarter: 2013Q3

REPORT INFORMATION
  Report Type: Spontaneous
  Country: GB (occurrence: GB)
  Receive Date: 20130802
  Receipt Date: 20130802
  Transmission Date: 20140515
  Serious: Yes (Life-Threatening, Other)
  Sender: FDA-Public Use
  Company Number: GB-B.I. PHARMACEUTICALS,INC./RIDGEFIELD-2013-UK-01591UK

PATIENT
  Age: 69 Year
  Sex: Female

DRUGS (16)
  1. PRADAXA [Suspect]
     Indication: ATRIAL FIBRILLATION
     Dosage: 300 MG
     Route: 048
  2. ASPIRIN [Concomitant]
  3. ATORVASTATIN [Concomitant]
  4. CANDESARTAN [Concomitant]
  5. CO-CODAMOL [Concomitant]
  6. DRONEDARONE [Concomitant]
  7. ETORICOXIB [Concomitant]
  8. FEXOFENADINE [Concomitant]
  9. FOLIC ACID [Concomitant]
  10. GTN [Concomitant]
  11. ILUBE [Concomitant]
  12. IPRATROPIUM BROMIDE [Concomitant]
  13. METHOTREXATE [Concomitant]
  14. NITRAZEPAM [Concomitant]
  15. OMACOR [Concomitant]
  16. RANITIDINE [Concomitant]

REACTIONS (4)
  - Haemorrhage [Recovered/Resolved]
  - Anaemia [Unknown]
  - Presyncope [Unknown]
  - Post procedural contusion [Unknown]
